FAERS Safety Report 16008995 (Version 2)
Quarter: 2019Q1

REPORT INFORMATION
  Report Type: Report from Study
  Country: US (occurrence: US)
  Receive Date: 20190224
  Receipt Date: 20190304
  Transmission Date: 20190418
  Serious: No
  Sender: FDA-Public Use
  Company Number: US-009507513-1902USA009357

PATIENT
  Sex: Female

DRUGS (1)
  1. ZINPLAVA [Suspect]
     Active Substance: BEZLOTOXUMAB
     Dosage: UNK
     Route: 042

REACTIONS (1)
  - Malaise [Not Recovered/Not Resolved]
